FAERS Safety Report 5545477-3 (Version None)
Quarter: 2007Q4

REPORT INFORMATION
  Report Type: 
  Country: None (occurrence: None)
  Receive Date: 20071206
  Receipt Date: 20071126
  Transmission Date: 20080405
  Serious: Yes (Hospitalization, Other)
  Sender: FDA-Public Use
  Company Number: 10E20071572

PATIENT
  Age: 19 Year
  Sex: Male

DRUGS (2)
  1. SOMATULINE DEPOT [Suspect]
     Indication: HYPOTHALAMO-PITUITARY DISORDER
     Dosage: 60 MG (60MG, 1 IN 1 M
     Dates: start: 20070601
  2. SOMATULINE DEPOT [Suspect]
     Indication: OBESITY
     Dosage: 60 MG (60MG, 1 IN 1 M
     Dates: start: 20070601

REACTIONS (5)
  - BILIARY COLIC [None]
  - CHOLELITHIASIS [None]
  - DIABETES MELLITUS INADEQUATE CONTROL [None]
  - HYPERTRIGLYCERIDAEMIA [None]
  - INSULIN RESISTANT DIABETES [None]
